FAERS Safety Report 13047444 (Version 1)
Quarter: 2016Q4

REPORT INFORMATION
  Report Type: Report from Study
  Country: US (occurrence: US)
  Receive Date: 20161220
  Receipt Date: 20161220
  Transmission Date: 20170207
  Serious: Yes (Death, Other)
  Sender: FDA-Public Use
  Company Number: US-PFIZER INC-2016515390

PATIENT
  Age: 84 Year
  Sex: Female

DRUGS (1)
  1. IBRANCE [Suspect]
     Active Substance: PALBOCICLIB
     Indication: BREAST CANCER
     Dosage: 75 MG, CYCLIC, (DAILY; 3 WEEKS ON/ 1WEEK OFF)
     Route: 048
     Dates: start: 20161010, end: 20161107

REACTIONS (4)
  - Diarrhoea [Unknown]
  - Fatigue [Unknown]
  - Death [Fatal]
  - Neutropenia [Unknown]

NARRATIVE: CASE EVENT DATE: 20161210
